FAERS Safety Report 6585071-9 (Version None)
Quarter: 2010Q1

REPORT INFORMATION
  Report Type: 
  Country: None (occurrence: None)
  Receive Date: 20100217
  Receipt Date: 20100208
  Transmission Date: 20100710
  Serious: Yes (Hospitalization, Other)
  Sender: FDA-Public Use
  Company Number: US-ROCHE-684472

PATIENT
  Sex: Female
  Weight: 60.1 kg

DRUGS (8)
  1. BEVACIZUMAB [Suspect]
     Indication: GLIOBLASTOMA MULTIFORME
     Dosage: DAY 1 AND 15
     Route: 065
     Dates: start: 20091113
  2. IRINOTECAN HCL [Suspect]
     Indication: GLIOBLASTOMA MULTIFORME
     Dosage: DAY 1 AND 15
     Route: 065
     Dates: start: 20091030
  3. CARBOPLATIN [Suspect]
     Indication: GLIOBLASTOMA MULTIFORME
     Dosage: AUC - 4
     Route: 065
     Dates: start: 20091030
  4. DECADRON [Concomitant]
  5. PEPCID [Concomitant]
  6. KEPPRA [Concomitant]
  7. ATIVAN [Concomitant]
  8. AMLODIPINE [Concomitant]

REACTIONS (4)
  - DISEASE PROGRESSION [None]
  - HYPERTENSION [None]
  - MENTAL STATUS CHANGES [None]
  - TUMOUR HAEMORRHAGE [None]
